FAERS Safety Report 23253247 (Version 3)
Quarter: 2024Q1

REPORT INFORMATION
  Report Type: Spontaneous
  Country: TR (occurrence: TR)
  Receive Date: 20231202
  Receipt Date: 20240314
  Transmission Date: 20240410
  Serious: Yes (Disabling, Other)
  Sender: FDA-Public Use
  Company Number: TR-ABBVIE-5520722

PATIENT
  Age: 63 Year
  Sex: Male

DRUGS (1)
  1. SILODOSIN [Suspect]
     Active Substance: SILODOSIN
     Indication: Prostatic disorder
     Dosage: FORM STRENGTH 8 MILLIGRAM, HARD CAPSULES, QD, ?LAST ADMIN DATE: 2023
     Route: 048
     Dates: start: 20230621

REACTIONS (5)
  - Visual impairment [Recovered/Resolved]
  - Photopsia [Recovered/Resolved]
  - Retinal tear [Recovered/Resolved]
  - Photophobia [Recovered/Resolved]
  - Photophobia [Recovered/Resolved]

NARRATIVE: CASE EVENT DATE: 20230101
